FAERS Safety Report 8777964 (Version 1)
Quarter: 2012Q4

REPORT INFORMATION
  Report Type: 
  Country: CA (occurrence: CA)
  Receive Date: 20120912
  Receipt Date: 20120912
  Transmission Date: 20130627
  Serious: Yes (Other)
  Sender: FDA-Public Use
  Company Number: CA-NAPPMUNDI-CAN-2012-0003320

PATIENT
  Age: 53 Year
  Sex: Female
  Weight: 58.96 kg

DRUGS (3)
  1. OXYCODONE [Suspect]
     Indication: FIBROMYALGIA
     Dosage: 60 mg, bid
     Route: 048
     Dates: start: 201204, end: 201207
  2. HYDROMORPH CONTIN [Suspect]
     Indication: FIBROMYALGIA
     Route: 048
  3. NSAID^S [Concomitant]
     Indication: BREAKTHROUGH PAIN

REACTIONS (7)
  - Drug ineffective [Unknown]
  - Loss of consciousness [Unknown]
  - Herpes zoster [Unknown]
  - Emotional distress [Unknown]
  - Emotional distress [None]
  - Inadequate analgesia [None]
  - Product substitution issue [None]
